FAERS Safety Report 16719937 (Version 2)
Quarter: 2019Q3

REPORT INFORMATION
  Report Type: Spontaneous
  Country: US (occurrence: US)
  Receive Date: 20190820
  Receipt Date: 20190821
  Transmission Date: 20191005
  Serious: No
  Sender: FDA-Public Use
  Company Number: US-PFIZER INC-2019352522

PATIENT
  Sex: Female

DRUGS (2)
  1. ADVIL PM [Suspect]
     Active Substance: DIPHENHYDRAMINE CITRATE\IBUPROFEN
     Indication: INSOMNIA
     Dosage: 200 MG, UNK
  2. ADVIL PM [Suspect]
     Active Substance: DIPHENHYDRAMINE CITRATE\IBUPROFEN
     Dosage: 600 MG, EVEN TAKING 3 AT A TIME

REACTIONS (2)
  - Intentional product misuse [Unknown]
  - Drug ineffective [Unknown]
